FAERS Safety Report 23728130 (Version 2)
Quarter: 2024Q2

REPORT INFORMATION
  Report Type: Spontaneous
  Country: US (occurrence: US)
  Receive Date: 20240410
  Receipt Date: 20240425
  Transmission Date: 20240716
  Serious: Yes (Other)
  Sender: FDA-Public Use
  Company Number: US-SEATTLE GENETICS-2024SGN04119

PATIENT
  Age: 27 Year
  Sex: Female

DRUGS (4)
  1. TIVDAK [Suspect]
     Active Substance: TISOTUMAB VEDOTIN-TFTV
     Indication: Squamous cell carcinoma of the cervix
     Dosage: UNK
     Route: 065
     Dates: start: 20220819
  2. DEXAMETHASONE [Concomitant]
     Active Substance: DEXAMETHASONE
     Indication: Squamous cell carcinoma of the cervix
     Dosage: PRIOR TO INFUSION AND THREE TIMES DAILY ON DAYS 1-3
     Route: 065
  3. BRIMONIDINE TARTRATE [Concomitant]
     Active Substance: BRIMONIDINE TARTRATE
     Indication: Squamous cell carcinoma of the cervix
     Dosage: PRIOR TO INFUSION
     Route: 065
  4. ARTIFICIAL TEARS [PROPYLENE GLYCOL] [Concomitant]
     Indication: Squamous cell carcinoma of the cervix
     Dosage: QID
     Route: 065

REACTIONS (3)
  - Punctate keratitis [Recovering/Resolving]
  - Dry eye [Unknown]
  - Conjunctivitis [Unknown]
